FAERS Safety Report 16423941 (Version 2)
Quarter: 2019Q3

REPORT INFORMATION
  Report Type: Spontaneous
  Country: US (occurrence: US)
  Receive Date: 20190613
  Receipt Date: 20190722
  Transmission Date: 20191004
  Serious: Yes (Hospitalization)
  Sender: FDA-Public Use
  Company Number: US-PHARMING-PHAUS2019000399

PATIENT

DRUGS (15)
  1. SOMA [Concomitant]
     Active Substance: CARISOPRODOL
  2. HEPARIN [Concomitant]
     Active Substance: HEPARIN SODIUM
  3. CLONIDINE. [Concomitant]
     Active Substance: CLONIDINE
  4. CITALOPRAM [Concomitant]
     Active Substance: CITALOPRAM HYDROBROMIDE
  5. CENTRUM [Concomitant]
     Active Substance: VITAMINS
  6. HYDRALAZINE [Concomitant]
     Active Substance: HYDRALAZINE HYDROCHLORIDE
  7. DIAZEPAM. [Concomitant]
     Active Substance: DIAZEPAM
  8. VALIUM [Concomitant]
     Active Substance: DIAZEPAM
  9. DANAZOL. [Concomitant]
     Active Substance: DANAZOL
  10. EPINEPHRINE. [Concomitant]
     Active Substance: EPINEPHRINE
  11. HYDROCODONE/ACETAMINOPHEN [Concomitant]
     Active Substance: ACETAMINOPHEN\HYDROCODONE
  12. RUCONEST [Suspect]
     Active Substance: HUMAN C1-ESTERASE INHIBITOR
     Indication: HEREDITARY ANGIOEDEMA
     Dosage: 3230 IU, AS NEEDED
     Route: 042
     Dates: start: 20190404
  13. RUCONEST [Suspect]
     Active Substance: HUMAN C1-ESTERASE INHIBITOR
     Dosage: 3230 IU, AS NEEDED
     Route: 042
     Dates: start: 20190523
  14. CINRYZE [Concomitant]
     Active Substance: HUMAN C1-ESTERASE INHIBITOR
  15. PRAVASTATIN. [Concomitant]
     Active Substance: PRAVASTATIN

REACTIONS (3)
  - Vascular access site infection [Unknown]
  - Vascular access site swelling [Unknown]
  - Vascular access site complication [Unknown]

NARRATIVE: CASE EVENT DATE: 201906
